FAERS Safety Report 4387664-6 (Version None)
Quarter: 2004Q2

REPORT INFORMATION
  Report Type: 
  Country: None (occurrence: None)
  Receive Date: 20040623
  Receipt Date: 20040607
  Transmission Date: 20050107
  Serious: Yes (Other)
  Sender: FDA-Public Use
  Company Number: USA040669499

PATIENT
  Age: 83 Year
  Sex: Female

DRUGS (5)
  1. EVISTA [Suspect]
     Indication: OSTEOPOROSIS
     Dates: start: 20031101
  2. TOPROL-XL [Concomitant]
  3. VITAMIN B-12 [Concomitant]
  4. CALCIUM WITH VITAMIN D [Concomitant]
  5. MULTIVITAMINS NOS (MULTIVITAMINS NOS) [Concomitant]

REACTIONS (4)
  - FRACTURE [None]
  - FRACTURED SACRUM [None]
  - GROIN PAIN [None]
  - ILIUM FRACTURE [None]
